FAERS Safety Report 5118888-8 (Version None)
Quarter: 2006Q4

REPORT INFORMATION
  Report Type: 
  Country: None (occurrence: None)
  Receive Date: 20061002
  Receipt Date: 20060818
  Transmission Date: 20070319
  Serious: Yes (Disabling, Other)
  Sender: FDA-Public Use
  Company Number: FR-BOEHRINGER INGELHEIM GMBH, GERMANY-2006-DE-04480BY

PATIENT
  Age: 66 Year
  Sex: Female

DRUGS (6)
  1. PRITOR [Suspect]
     Indication: HYPERTENSION
     Route: 048
     Dates: start: 20010101, end: 20040101
  2. PRITOR [Suspect]
     Route: 048
     Dates: start: 20060101
  3. PRITOR PLUS [Suspect]
     Indication: HYPERTENSION
     Route: 048
     Dates: start: 20041201, end: 20060818
  4. ISOPTIN [Concomitant]
     Route: 065
  5. BRONCHODUAL [Concomitant]
     Route: 065
  6. LANZOR [Concomitant]
     Route: 065

REACTIONS (6)
  - ARTHRALGIA [None]
  - MUSCLE SPASMS [None]
  - MYALGIA [None]
  - PAIN IN EXTREMITY [None]
  - TENDON DISORDER [None]
  - TENDONITIS [None]
